FAERS Safety Report 5145109-2 (Version None)
Quarter: 2006Q4

REPORT INFORMATION
  Report Type: 
  Country: None (occurrence: None)
  Receive Date: 20061107
  Receipt Date: 20061102
  Transmission Date: 20070319
  Serious: Yes (Other)
  Sender: FDA-Public Use
  Company Number: CH-BRISTOL-MYERS SQUIBB COMPANY-13565536

PATIENT
  Sex: Male

DRUGS (1)
  1. APROVEL [Suspect]
     Indication: ESSENTIAL HYPERTENSION
     Dates: start: 20060501

REACTIONS (2)
  - BREAST PAIN [None]
  - GYNAECOMASTIA [None]
